FAERS Safety Report 4418088-0 (Version None)
Quarter: 2004Q3

REPORT INFORMATION
  Report Type: 
  Country: None (occurrence: None)
  Receive Date: 20040730
  Receipt Date: 20040720
  Transmission Date: 20050211
  Serious: Yes (Other)
  Sender: FDA-Public Use
  Company Number: DE-JNJFOC-20040705479

PATIENT
  Age: 9 Year
  Sex: Female

DRUGS (3)
  1. TOPAMAX [Suspect]
     Indication: LENNOX-GASTAUT SYNDROME
     Dosage: ORAL
     Route: 048
     Dates: start: 20010101
  2. KEPPRA [Suspect]
     Indication: LENNOX-GASTAUT SYNDROME
  3. PHENOBARBITAL TAB [Suspect]
     Indication: LENNOX-GASTAUT SYNDROME

REACTIONS (5)
  - COAGULOPATHY [None]
  - ENCEPHALOPATHY [None]
  - HEPATIC ENZYME INCREASED [None]
  - HEPATIC FAILURE [None]
  - RESPIRATORY FAILURE [None]
